FAERS Safety Report 15842347 (Version 1)
Quarter: 2019Q1

REPORT INFORMATION
  Report Type: Spontaneous
  Country: US (occurrence: US)
  Receive Date: 20190118
  Receipt Date: 20190118
  Transmission Date: 20190417
  Serious: No
  Sender: FDA-Public Use
  Company Number: US-SA-2019SA012509

PATIENT
  Sex: Female

DRUGS (3)
  1. ZANTAC [Suspect]
     Active Substance: RANITIDINE HYDROCHLORIDE
     Route: 065
  2. TUMS [Suspect]
     Active Substance: CALCIUM CARBONATE
     Dosage: UNK UNK, UNK
     Route: 065
  3. MYLANTA [Suspect]
     Active Substance: ALUMINUM HYDROXIDE\DIMETHICONE\MAGNESIUM HYDROXIDE
     Dosage: UNK UNK, UNK
     Route: 065

REACTIONS (2)
  - Exposure during pregnancy [Unknown]
  - Therapeutic response decreased [Unknown]
